FAERS Safety Report 15736585 (Version 1)
Quarter: 2018Q4

REPORT INFORMATION
  Report Type: Report from Study
  Country: DK (occurrence: DK)
  Receive Date: 20181218
  Receipt Date: 20181218
  Transmission Date: 20190205
  Serious: Yes (Death, Other)
  Sender: FDA-Public Use
  Company Number: DK-RECRO GAINESVILLE LLC-REPH-2018-000089

PATIENT
  Age: 61 Year
  Sex: Female

DRUGS (4)
  1. ZOLPIDEM [Concomitant]
     Active Substance: ZOLPIDEM\ZOLPIDEM TARTRATE
     Dosage: 200 MG, UNK
  2. VERAPAMIL HYDROCHLORIDE SUSTAINED RELEASE [Suspect]
     Active Substance: VERAPAMIL HYDROCHLORIDE
     Dosage: 6000 MG, UNK
  3. RAMIPRIL. [Concomitant]
     Active Substance: RAMIPRIL
     Dosage: 150 MG, UNK
  4. IBUPROFEN. [Concomitant]
     Active Substance: IBUPROFEN
     Dosage: 20 G, UNK

REACTIONS (13)
  - Anuria [Unknown]
  - Blood lactic acid increased [Unknown]
  - Hypothermia [Unknown]
  - Body temperature increased [Unknown]
  - Loss of consciousness [Unknown]
  - Acidosis [Unknown]
  - Base excess decreased [Unknown]
  - Hypotension [Unknown]
  - Intentional overdose [Fatal]
  - Body temperature decreased [Unknown]
  - Hyperhidrosis [Unknown]
  - Pallor [Unknown]
  - Bradycardia [Unknown]
